FAERS Safety Report 5697328-4 (Version None)
Quarter: 2008Q2

REPORT INFORMATION
  Report Type: 
  Country: None (occurrence: None)
  Receive Date: 20080408
  Receipt Date: 20080326
  Transmission Date: 20081010
  Serious: Yes (Death)
  Sender: FDA-Public Use
  Company Number: US-BAYER-200816005GPV

PATIENT

DRUGS (2)
  1. FLUDARABINE [Suspect]
     Indication: HAEMATOLOGICAL MALIGNANCY
     Route: 065
  2. BUSULFAN [Suspect]
     Indication: HAEMATOLOGICAL MALIGNANCY
     Route: 042

REACTIONS (9)
  - ACUTE GRAFT VERSUS HOST DISEASE [None]
  - BACTERIAL INFECTION [None]
  - CARDIOMYOPATHY [None]
  - CHRONIC GRAFT VERSUS HOST DISEASE [None]
  - EMBOLISM [None]
  - FUNGAL INFECTION [None]
  - INTERSTITIAL LUNG DISEASE [None]
  - MULTI-ORGAN FAILURE [None]
  - VIRAL INFECTION [None]
